FAERS Safety Report 6198056-1 (Version None)
Quarter: 2009Q2

REPORT INFORMATION
  Report Type: 
  Country: None (occurrence: None)
  Receive Date: 20090518
  Receipt Date: 20090512
  Transmission Date: 20091009
  Serious: Yes (Disabling)
  Sender: FDA-Public Use
  Company Number: CERZ-1000578

PATIENT
  Age: 38 Year
  Sex: Female
  Weight: 67.5 kg

DRUGS (6)
  1. CEREZYME [Suspect]
     Indication: GAUCHER'S DISEASE
     Dosage: 8000 U, INTRAVENOUS
     Route: 042
     Dates: start: 20001023
  2. GLYCOPYRROLATE [Concomitant]
  3. LORAGA (LACTULOSE) [Concomitant]
  4. ALGIRON (COMETROPIUM BROMIDE) [Concomitant]
  5. FLON/ASTAVE (FLON/ASTAVE) [Concomitant]
  6. MIRALAX [Concomitant]

REACTIONS (2)
  - COLITIS ULCERATIVE [None]
  - IRRITABLE BOWEL SYNDROME [None]
